FAERS Safety Report 8511690 (Version 2)
Quarter: 2012Q4

REPORT INFORMATION
  Report Type: 
  Country: US (occurrence: US)
  Receive Date: 20120413
  Receipt Date: 20121214
  Transmission Date: 20130627
  Serious: No
  Sender: FDA-Public Use
  Company Number: US-ASTRAZENECA-2011SE40154

PATIENT
  Age: 63 Year
  Sex: Female

DRUGS (7)
  1. NEXIUM [Suspect]
     Dosage: TAKE IT EVERY TWO TO THREE DAYS INSTEAD OF HOW IT WAS PRESCRIBED
     Route: 048
     Dates: start: 200707
  2. NEXIUM [Suspect]
     Route: 048
     Dates: start: 200707
  3. CRESTOR [Suspect]
     Route: 048
  4. ZOCOR [Concomitant]
  5. BIAXIN [Concomitant]
  6. AMOXICILLIN TRIHYDRATE [Concomitant]
  7. ACIPHEX [Concomitant]

REACTIONS (19)
  - Gastrointestinal disorder [Unknown]
  - Blood glucose decreased [Unknown]
  - Blood magnesium abnormal [Unknown]
  - Bone disorder [Unknown]
  - Gastric ulcer [Unknown]
  - Chest pain [Unknown]
  - Stress [Unknown]
  - Gastritis [Unknown]
  - Helicobacter infection [Unknown]
  - Dyspepsia [Unknown]
  - Migraine [Unknown]
  - Diarrhoea [Unknown]
  - Malaise [Unknown]
  - Malaise [Unknown]
  - Abdominal discomfort [Unknown]
  - Headache [Unknown]
  - Abdominal pain [Unknown]
  - Incorrect dose administered [Unknown]
  - Drug dose omission [Unknown]
